FAERS Safety Report 6935947-5 (Version None)
Quarter: 2010Q3

REPORT INFORMATION
  Report Type: 
  Country: None (occurrence: None)
  Receive Date: 20100823
  Receipt Date: 20100810
  Transmission Date: 20110219
  Serious: Yes (Other)
  Sender: FDA-Public Use
  Company Number: US-ELI_LILLY_AND_COMPANY-US201008003277

PATIENT

DRUGS (1)
  1. HUMALOG [Suspect]
     Indication: DIABETES MELLITUS
     Dosage: UNK, UNKNOWN
     Route: 065

REACTIONS (10)
  - ANAEMIA [None]
  - BLOOD CHOLESTEROL INCREASED [None]
  - CARDIOVASCULAR DISORDER [None]
  - DIABETIC NEUROPATHY [None]
  - ERECTILE DYSFUNCTION [None]
  - GASTROINTESTINAL DISORDER [None]
  - HYPERTENSION [None]
  - MAJOR DEPRESSION [None]
  - RENAL DISORDER [None]
  - VISUAL IMPAIRMENT [None]
